FAERS Safety Report 22518028 (Version 1)
Quarter: 2023Q2

REPORT INFORMATION
  Report Type: Spontaneous
  Country: CN (occurrence: CN)
  Receive Date: 20230605
  Receipt Date: 20230605
  Transmission Date: 20230722
  Serious: Yes (Hospitalization, Other)
  Sender: FDA-Public Use
  Company Number: CN-ABBVIE-5188458

PATIENT
  Age: 27 Year
  Sex: Female
  Weight: 55 kg

DRUGS (3)
  1. VENETOCLAX [Suspect]
     Active Substance: VENETOCLAX
     Indication: Acute leukaemia
     Dosage: 400 MILLIGRAM
     Route: 048
     Dates: start: 20230418, end: 20230515
  2. AZACITIDINE [Suspect]
     Active Substance: AZACITIDINE
     Indication: Acute leukaemia
     Dosage: 0.1 GRAM
     Route: 058
     Dates: start: 20230418, end: 20230424
  3. FLUMATINIB [Suspect]
     Active Substance: FLUMATINIB
     Indication: Acute leukaemia
     Dosage: 0.4 GRAM
     Route: 048
     Dates: start: 20230418, end: 20230529

REACTIONS (6)
  - Myelosuppression [Recovering/Resolving]
  - Myelosuppression [Unknown]
  - Pyrexia [Unknown]
  - Agranulocytosis [Unknown]
  - Infection susceptibility increased [Unknown]
  - Mouth ulceration [Unknown]

NARRATIVE: CASE EVENT DATE: 20230506
